FAERS Safety Report 8830791 (Version 2)
Quarter: 2012Q4

REPORT INFORMATION
  Report Type: 
  Country: IL (occurrence: IL)
  Receive Date: 20121009
  Receipt Date: 20121016
  Transmission Date: 20130627
  Serious: Yes (Other)
  Sender: FDA-Public Use
  Company Number: IL-RANBAXY-2012RR-60873

PATIENT
  Age: 58 Year
  Sex: Male

DRUGS (8)
  1. OMEPRAZOLE [Suspect]
     Indication: PEPTIC ULCER
     Dosage: UNK
     Route: 065
  2. OMEPRAZOLE [Interacting]
     Indication: HELICOBACTER INFECTION
  3. CLARITHROMYCIN [Interacting]
     Indication: PEPTIC ULCER
     Dosage: UNK
     Route: 065
  4. CLARITHROMYCIN [Interacting]
     Indication: HELICOBACTER INFECTION
  5. CARBAMAZEPINE [Interacting]
     Indication: GRAND MAL CONVULSION
     Dosage: UNK
     Route: 065
  6. AMOXICILLIN [Concomitant]
     Indication: PEPTIC ULCER
     Dosage: UNK
     Route: 065
  7. AMOXICILLIN [Concomitant]
     Indication: HELICOBACTER INFECTION
  8. PHENYTOIN [Concomitant]
     Indication: GRAND MAL CONVULSION
     Dosage: UNK
     Route: 065

REACTIONS (3)
  - Ataxia [Recovered/Resolved]
  - Vertigo [Recovered/Resolved]
  - Drug interaction [Recovered/Resolved]
